FAERS Safety Report 12645108 (Version 1)
Quarter: 2016Q3

REPORT INFORMATION
  Report Type: Spontaneous
  Country: DK (occurrence: DK)
  Receive Date: 20160811
  Receipt Date: 20160811
  Transmission Date: 20161109
  Serious: Yes (Hospitalization)
  Sender: FDA-Public Use
  Company Number: DK-JNJFOC-20160805768

PATIENT
  Age: 14 Year
  Sex: Male

DRUGS (5)
  1. TRUXAL [Concomitant]
     Active Substance: CHLORPROTHIXENE
     Indication: ANXIETY
     Dosage: DOSE: 15
     Route: 065
     Dates: start: 20130625
  2. SERTRALINA TEVA [Suspect]
     Active Substance: SERTRALINE HYDROCHLORIDE
     Indication: OBSESSIVE-COMPULSIVE DISORDER
     Route: 065
     Dates: start: 20130815, end: 2014
  3. RISPERDAL [Suspect]
     Active Substance: RISPERIDONE
     Indication: OBSESSIVE-COMPULSIVE DISORDER
     Dosage: DOSE INCREASED
     Route: 065
     Dates: start: 20140903
  4. RISPERDAL [Suspect]
     Active Substance: RISPERIDONE
     Indication: OBSESSIVE-COMPULSIVE DISORDER
     Route: 065
     Dates: start: 20140818, end: 2014
  5. SERTRALINA TEVA [Suspect]
     Active Substance: SERTRALINE HYDROCHLORIDE
     Indication: OBSESSIVE-COMPULSIVE DISORDER
     Route: 065
     Dates: start: 20140903, end: 201409

REACTIONS (16)
  - Abdominal pain upper [Unknown]
  - Crying [Unknown]
  - Emotional disorder [Unknown]
  - Seizure [Recovered/Resolved]
  - Muscle spasms [Unknown]
  - Obsessive-compulsive disorder [Unknown]
  - Movement disorder [Unknown]
  - Somnolence [Unknown]
  - Product use issue [Unknown]
  - Condition aggravated [Unknown]
  - Aggression [Unknown]
  - Eating disorder [Unknown]
  - Intentional self-injury [Unknown]
  - Rash [Unknown]
  - Off label use [Unknown]
  - Speech disorder [Unknown]

NARRATIVE: CASE EVENT DATE: 2014
